FAERS Safety Report 4581022-7 (Version None)
Quarter: 2005Q1

REPORT INFORMATION
  Report Type: 
  Country: None (occurrence: None)
  Receive Date: 20050214
  Receipt Date: 20040719
  Transmission Date: 20050727
  Serious: No
  Sender: FDA-Public Use
  Company Number: US012212

PATIENT
  Age: 26 Year
  Sex: Female
  Weight: 65.9 kg

DRUGS (7)
  1. LAMICTAL [Suspect]
     Indication: DRUG USE FOR UNKNOWN INDICATION
     Route: 048
  2. PROVIGIL [Suspect]
     Indication: SLEEP DISORDER
     Dosage: 150MG PER DAY
     Route: 048
     Dates: start: 20030701, end: 20031022
  3. STRATTERA [Concomitant]
  4. ZYPREXA [Concomitant]
  5. SYNTHROID [Concomitant]
  6. ORTHO TRI-CYCLEN [Concomitant]
  7. PREVACID [Concomitant]

REACTIONS (6)
  - ARTHRALGIA [None]
  - HEADACHE [None]
  - JOINT SWELLING [None]
  - PYREXIA [None]
  - RASH GENERALISED [None]
  - SWELLING FACE [None]
